FAERS Safety Report 21285345 (Version 1)
Quarter: 2022Q3

REPORT INFORMATION
  Report Type: Spontaneous
  Country: JP (occurrence: JP)
  Receive Date: 20220902
  Receipt Date: 20220902
  Transmission Date: 20221026
  Serious: Yes (Death, Other)
  Sender: FDA-Public Use
  Company Number: JP-CHUGAI-2022033665

PATIENT
  Age: 72 Year
  Sex: Female
  Weight: 44 kg

DRUGS (71)
  1. AVASTIN [Suspect]
     Active Substance: BEVACIZUMAB
     Indication: Malignant peritoneal neoplasm
     Dosage: 670 MILLIGRAM, ONCE/4WEEKS
     Route: 041
     Dates: start: 20170426, end: 20170525
  2. AVASTIN [Suspect]
     Active Substance: BEVACIZUMAB
     Dosage: 670 MILLIGRAM, QD
     Route: 041
     Dates: start: 20170629, end: 20170629
  3. AVASTIN [Suspect]
     Active Substance: BEVACIZUMAB
     Dosage: 675 MILLIGRAM, ONCE/3WEEKS
     Route: 041
     Dates: start: 20170808, end: 20171010
  4. AVASTIN [Suspect]
     Active Substance: BEVACIZUMAB
     Dosage: 675 MILLIGRAM, ONCE/3WEEKS
     Route: 041
     Dates: start: 20171121, end: 20171212
  5. AVASTIN [Suspect]
     Active Substance: BEVACIZUMAB
     Dosage: 675 MILLIGRAM, ONCE/4WEEKS
     Route: 041
     Dates: start: 20180313, end: 20180410
  6. AVASTIN [Suspect]
     Active Substance: BEVACIZUMAB
     Dosage: 675 MILLIGRAM, QD
     Route: 041
     Dates: start: 20180501, end: 20180501
  7. AVASTIN [Suspect]
     Active Substance: BEVACIZUMAB
     Dosage: 675 MILLIGRAM, ONCE/3WEEKS
     Route: 041
     Dates: start: 20180806, end: 20180827
  8. AVASTIN [Suspect]
     Active Substance: BEVACIZUMAB
     Dosage: 675 MILLIGRAM, QD
     Route: 041
     Dates: start: 20181022, end: 20181022
  9. AVASTIN [Suspect]
     Active Substance: BEVACIZUMAB
     Dosage: 675 MILLIGRAM, ONCE/3WEEKS
     Route: 041
     Dates: start: 20181203, end: 20181227
  10. AVASTIN [Suspect]
     Active Substance: BEVACIZUMAB
     Dosage: 675 MILLIGRAM, QD
     Route: 041
     Dates: start: 20190204, end: 20190204
  11. AVASTIN [Suspect]
     Active Substance: BEVACIZUMAB
     Dosage: 675 MILLIGRAM, QD
     Route: 041
     Dates: start: 20190311, end: 20190311
  12. AVASTIN [Suspect]
     Active Substance: BEVACIZUMAB
     Dosage: 675 MILLIGRAM, QD
     Route: 041
     Dates: start: 20190422, end: 20190422
  13. AVASTIN [Suspect]
     Active Substance: BEVACIZUMAB
     Dosage: 675 MILLIGRAM, QD
     Route: 041
     Dates: start: 20190517, end: 20190517
  14. AVASTIN [Suspect]
     Active Substance: BEVACIZUMAB
     Dosage: 675 MILLIGRAM, QD
     Route: 041
     Dates: start: 20190823, end: 20190823
  15. AVASTIN [Suspect]
     Active Substance: BEVACIZUMAB
     Dosage: 675 MILLIGRAM, QD
     Route: 041
     Dates: start: 20190823, end: 20190823
  16. AVASTIN [Suspect]
     Active Substance: BEVACIZUMAB
     Dosage: 675 MILLIGRAM, QD
     Route: 041
     Dates: start: 20200124, end: 20200124
  17. AVASTIN [Suspect]
     Active Substance: BEVACIZUMAB
     Dosage: 675 MILLIGRAM, QD
     Route: 041
     Dates: start: 20200515, end: 20200515
  18. AVASTIN [Suspect]
     Active Substance: BEVACIZUMAB
     Dosage: 720 MILLIGRAM, ONCE/3WEEKS
     Route: 041
     Dates: start: 20200814, end: 20200904
  19. AVASTIN [Suspect]
     Active Substance: BEVACIZUMAB
     Dosage: 700 MILLIGRAM, QD
     Route: 041
     Dates: start: 20210115, end: 20210115
  20. AVASTIN [Suspect]
     Active Substance: BEVACIZUMAB
     Dosage: 700 MILLIGRAM, QD
     Route: 041
     Dates: start: 20210507, end: 20210507
  21. AVASTIN [Suspect]
     Active Substance: BEVACIZUMAB
     Dosage: 700 MILLIGRAM, QD
     Route: 041
     Dates: start: 20210611, end: 20210611
  22. AVASTIN [Suspect]
     Active Substance: BEVACIZUMAB
     Dosage: 700 MILLIGRAM, ONCE/4WEEKS
     Route: 041
     Dates: start: 20210730, end: 20210827
  23. AVASTIN [Suspect]
     Active Substance: BEVACIZUMAB
     Dosage: 700 MILLIGRAM, QD
     Route: 041
     Dates: start: 20211001, end: 20211001
  24. AVASTIN [Suspect]
     Active Substance: BEVACIZUMAB
     Dosage: 700 MILLIGRAM, QD
     Route: 041
     Dates: start: 20211105, end: 20211105
  25. AVASTIN [Suspect]
     Active Substance: BEVACIZUMAB
     Dosage: 700 MILLIGRAM, QD
     Route: 041
     Dates: start: 20211210, end: 20211210
  26. AVASTIN [Suspect]
     Active Substance: BEVACIZUMAB
     Dosage: 690 MILLIGRAM, QD
     Route: 041
     Dates: start: 20220210, end: 20220210
  27. AVASTIN [Suspect]
     Active Substance: BEVACIZUMAB
     Dosage: 645 MILLIGRAM, QD
     Route: 041
     Dates: start: 20220310, end: 20220310
  28. DOXIL [Concomitant]
     Active Substance: DOXORUBICIN HYDROCHLORIDE
     Indication: Malignant peritoneal neoplasm
     Dosage: 55 MILLIGRAM, QD
     Route: 042
     Dates: start: 20211210, end: 20211210
  29. DOXIL [Concomitant]
     Active Substance: DOXORUBICIN HYDROCHLORIDE
     Dosage: 48 MILLIGRAM, QD
     Route: 042
     Dates: start: 20220113, end: 20220113
  30. DOXIL [Concomitant]
     Active Substance: DOXORUBICIN HYDROCHLORIDE
     Dosage: 46 MILLIGRAM, ONCE/4WEEKS
     Route: 042
     Dates: start: 20220210, end: 20220310
  31. PACLITAXEL [Concomitant]
     Active Substance: PACLITAXEL
     Indication: Malignant peritoneal neoplasm
     Dosage: 234 MILLIGRAM, ONCE/4WEEKS
     Route: 041
     Dates: start: 20170426, end: 20170525
  32. PACLITAXEL [Concomitant]
     Active Substance: PACLITAXEL
     Dosage: 234 MILLIGRAM, QD
     Route: 041
     Dates: start: 20170629, end: 20170629
  33. PACLITAXEL [Concomitant]
     Active Substance: PACLITAXEL
     Dosage: 234 MILLIGRAM, ONCE/4WEEKS
     Route: 041
     Dates: start: 20190517, end: 20190712
  34. PACLITAXEL [Concomitant]
     Active Substance: PACLITAXEL
     Dosage: 234 MILLIGRAM, QD
     Route: 041
     Dates: start: 20190823, end: 20190823
  35. PACLITAXEL [Concomitant]
     Active Substance: PACLITAXEL
     Dosage: 234 MILLIGRAM, QD
     Route: 041
     Dates: start: 20191011, end: 20191011
  36. PACLITAXEL [Concomitant]
     Active Substance: PACLITAXEL
     Dosage: 234 MILLIGRAM, QD
     Route: 041
     Dates: start: 20191129, end: 20191129
  37. PACLITAXEL [Concomitant]
     Active Substance: PACLITAXEL
     Dosage: 234 MILLIGRAM, QD
     Route: 041
     Dates: start: 20200124, end: 20200124
  38. PACLITAXEL [Concomitant]
     Active Substance: PACLITAXEL
     Dosage: 234 MILLIGRAM, QD
     Route: 041
     Dates: start: 20200313, end: 20200313
  39. PACLITAXEL [Concomitant]
     Active Substance: PACLITAXEL
     Dosage: 234 MILLIGRAM, QD
     Route: 041
     Dates: start: 20200515, end: 20200515
  40. PACLITAXEL [Concomitant]
     Active Substance: PACLITAXEL
     Dosage: 240 MILLIGRAM, QD
     Route: 041
     Dates: start: 20201204, end: 20201204
  41. PACLITAXEL [Concomitant]
     Active Substance: PACLITAXEL
     Dosage: 240 MILLIGRAM, QD
     Route: 041
     Dates: start: 20210115, end: 20210115
  42. PACLITAXEL [Concomitant]
     Active Substance: PACLITAXEL
     Dosage: 240 MILLIGRAM, QD
     Route: 041
     Dates: start: 20210219, end: 20210219
  43. PACLITAXEL [Concomitant]
     Active Substance: PACLITAXEL
     Dosage: 240 MILLIGRAM, QD
     Route: 041
     Dates: start: 20210402, end: 20210402
  44. PACLITAXEL [Concomitant]
     Active Substance: PACLITAXEL
     Dosage: 240 MILLIGRAM, QD
     Route: 041
     Dates: start: 20210507, end: 20210507
  45. PACLITAXEL [Concomitant]
     Active Substance: PACLITAXEL
     Dosage: 240 MILLIGRAM, QD
     Route: 041
     Dates: start: 20210611, end: 20210611
  46. PACLITAXEL [Concomitant]
     Active Substance: PACLITAXEL
     Dosage: 240 MILLIGRAM, ONCE/4WEEKS
     Route: 041
     Dates: start: 20210730, end: 20210827
  47. PACLITAXEL [Concomitant]
     Active Substance: PACLITAXEL
     Dosage: 240 MILLIGRAM, QD
     Route: 041
     Dates: start: 20211001, end: 20211001
  48. PACLITAXEL [Concomitant]
     Active Substance: PACLITAXEL
     Dosage: 240 MILLIGRAM, QD
     Route: 041
     Dates: start: 20211105, end: 20211105
  49. CARBOPLATIN [Concomitant]
     Active Substance: CARBOPLATIN
     Indication: Malignant peritoneal neoplasm
     Dosage: 470 MILLIGRAM, QD
     Route: 041
     Dates: start: 20170426, end: 20170426
  50. CARBOPLATIN [Concomitant]
     Active Substance: CARBOPLATIN
     Dosage: 400 MILLIGRAM, QD
     Route: 041
     Dates: start: 20170525, end: 20170525
  51. CARBOPLATIN [Concomitant]
     Active Substance: CARBOPLATIN
     Dosage: 400 MILLIGRAM, QD
     Route: 041
     Dates: start: 20170629, end: 20170629
  52. CARBOPLATIN [Concomitant]
     Active Substance: CARBOPLATIN
     Dosage: 390 MILLIGRAM, QD
     Route: 041
     Dates: start: 20190517, end: 20190517
  53. CARBOPLATIN [Concomitant]
     Active Substance: CARBOPLATIN
     Dosage: 440 MILLIGRAM, QD
     Route: 041
     Dates: start: 20190614, end: 20190614
  54. CARBOPLATIN [Concomitant]
     Active Substance: CARBOPLATIN
     Dosage: 390 MILLIGRAM, QD
     Route: 041
     Dates: start: 20190712, end: 20190712
  55. CARBOPLATIN [Concomitant]
     Active Substance: CARBOPLATIN
     Dosage: 390 MILLIGRAM, QD
     Route: 041
     Dates: start: 20190823, end: 20190823
  56. CARBOPLATIN [Concomitant]
     Active Substance: CARBOPLATIN
     Dosage: 310 MILLIGRAM, QD
     Route: 041
     Dates: start: 20191011, end: 20191011
  57. CARBOPLATIN [Concomitant]
     Active Substance: CARBOPLATIN
     Dosage: 310 MILLIGRAM, QD
     Route: 041
     Dates: start: 20191129, end: 20191129
  58. CARBOPLATIN [Concomitant]
     Active Substance: CARBOPLATIN
     Dosage: 320 MILLIGRAM, QD
     Route: 041
     Dates: start: 20200124, end: 20200124
  59. CARBOPLATIN [Concomitant]
     Active Substance: CARBOPLATIN
     Dosage: 320 MILLIGRAM, QD
     Route: 041
     Dates: start: 20200313, end: 20200313
  60. CARBOPLATIN [Concomitant]
     Active Substance: CARBOPLATIN
     Dosage: 320 MILLIGRAM, QD
     Route: 041
     Dates: start: 20200313, end: 20200313
  61. CARBOPLATIN [Concomitant]
     Active Substance: CARBOPLATIN
     Dosage: 320 MILLIGRAM, QD
     Route: 041
     Dates: start: 20200515, end: 20200515
  62. CARBOPLATIN [Concomitant]
     Active Substance: CARBOPLATIN
     Dosage: 310 MILLIGRAM, QD
     Route: 041
     Dates: start: 20201204, end: 20201204
  63. CARBOPLATIN [Concomitant]
     Active Substance: CARBOPLATIN
     Dosage: 260 MILLIGRAM, QD
     Route: 041
     Dates: start: 20210115, end: 20210115
  64. CARBOPLATIN [Concomitant]
     Active Substance: CARBOPLATIN
     Dosage: 310 MILLIGRAM, QD
     Route: 041
     Dates: start: 20210219, end: 20210219
  65. CARBOPLATIN [Concomitant]
     Active Substance: CARBOPLATIN
     Dosage: 310 MILLIGRAM, QD
     Route: 041
     Dates: start: 20210402, end: 20210402
  66. CARBOPLATIN [Concomitant]
     Active Substance: CARBOPLATIN
     Dosage: 290 MILLIGRAM, QD
     Route: 041
     Dates: start: 20210507, end: 20210507
  67. CARBOPLATIN [Concomitant]
     Active Substance: CARBOPLATIN
     Dosage: 290 MILLIGRAM, QD
     Route: 041
     Dates: start: 20210611, end: 20210611
  68. CARBOPLATIN [Concomitant]
     Active Substance: CARBOPLATIN
     Dosage: 250 MILLIGRAM, QD
     Route: 041
     Dates: start: 20210730, end: 20210730
  69. CARBOPLATIN [Concomitant]
     Active Substance: CARBOPLATIN
     Dosage: 260 MILLIGRAM, QD
     Route: 041
     Dates: start: 20210827, end: 20210827
  70. CARBOPLATIN [Concomitant]
     Active Substance: CARBOPLATIN
     Dosage: 270 MILLIGRAM, QD
     Route: 041
     Dates: start: 20211001, end: 20211001
  71. CARBOPLATIN [Concomitant]
     Active Substance: CARBOPLATIN
     Dosage: 270 MILLIGRAM, QD
     Route: 041
     Dates: start: 20211105, end: 20211105

REACTIONS (5)
  - Death [Fatal]
  - Myelosuppression [Recovering/Resolving]
  - Anaemia [Unknown]
  - Urine protein/creatinine ratio increased [Unknown]
  - Burns second degree [Unknown]

NARRATIVE: CASE EVENT DATE: 20171029
